FAERS Safety Report 5602145-7 (Version None)
Quarter: 2008Q1

REPORT INFORMATION
  Report Type: 
  Country: None (occurrence: None)
  Receive Date: 20080125
  Receipt Date: 20080122
  Transmission Date: 20080703
  Serious: Yes (Life-Threatening, Hospitalization, Disabling)
  Sender: FDA-Public Use
  Company Number: PHFR2008GB00631

PATIENT
  Age: 78 Year
  Sex: Male

DRUGS (3)
  1. FAMCICLOVIR [Suspect]
     Route: 048
  2. ASPIRIN [Concomitant]
     Dosage: 75 MG, QD
     Route: 065
  3. INDOMETHACIN [Concomitant]
     Dosage: 25 MG, QD
     Route: 065

REACTIONS (1)
  - OESOPHAGEAL RUPTURE [None]
